FAERS Safety Report 21093043 (Version 2)
Quarter: 2025Q2

REPORT INFORMATION
  Report Type: Spontaneous
  Country: GR (occurrence: GR)
  Receive Date: 20220718
  Receipt Date: 20250418
  Transmission Date: 20250716
  Serious: Yes (Other)
  Sender: ROCHE
  Company Number: GR-MYLANLABS-2022M1048774

PATIENT

DRUGS (2)
  1. ATEZOLIZUMAB [Suspect]
     Active Substance: ATEZOLIZUMAB
     Indication: Hepatocellular carcinoma
     Route: 065
  2. BEVACIZUMAB [Suspect]
     Active Substance: BEVACIZUMAB
     Indication: Hepatocellular carcinoma
     Route: 065

REACTIONS (11)
  - Abscess [Unknown]
  - Pulmonary embolism [Unknown]
  - Haemoperitoneum [Unknown]
  - Drug intolerance [Unknown]
  - Autoimmune thyroiditis [Unknown]
  - Amylase [Unknown]
  - Fatigue [Unknown]
  - Haematuria [Unknown]
  - Colitis [Unknown]
  - Condition aggravated [Unknown]
  - Proteinuria [Unknown]
